FAERS Safety Report 8184686-4 (Version None)
Quarter: 2012Q1

REPORT INFORMATION
  Report Type: 
  Country: None (occurrence: None)
  Receive Date: 20120305
  Receipt Date: 20120224
  Transmission Date: 20120608
  Serious: Yes (Other)
  Sender: FDA-Public Use
  Company Number: US-BAYER-2011-082320

PATIENT
  Age: 23 Year
  Sex: Female
  Weight: 90 kg

DRUGS (7)
  1. YASMIN [Suspect]
     Dosage: UNK
     Dates: start: 20070704, end: 20081215
  2. YASMIN [Suspect]
     Indication: PAIN
     Dosage: UNK
     Dates: start: 20070704, end: 20071215
  3. ASPIRIN [Concomitant]
     Indication: HEADACHE
     Dosage: 2 DF, UNK
     Route: 048
  4. ACETAMINOPHEN [Concomitant]
     Indication: PAIN
     Dosage: 2 DF, UNK
     Route: 048
  5. ALLERGY MEDICATION [Concomitant]
     Indication: MULTIPLE ALLERGIES
     Dosage: 2 DF, UNK
     Route: 048
  6. TRAMADOL HCL [Concomitant]
     Indication: PAIN
     Dosage: 1 DF, UNK
     Route: 048
  7. YAZ [Suspect]
     Indication: PAIN
     Dosage: UNK
     Dates: start: 20070704, end: 20081215

REACTIONS (7)
  - THROMBOSIS [None]
  - PANCREATITIS [None]
  - PANCREATIC DISORDER [None]
  - PAIN [None]
  - VEIN DISORDER [None]
  - INJURY [None]
  - ENDOCRINE DISORDER [None]
